FAERS Safety Report 11397973 (Version 1)
Quarter: 2015Q3

REPORT INFORMATION
  Report Type: Spontaneous
  Country: US (occurrence: US)
  Receive Date: 20150820
  Receipt Date: 20150820
  Transmission Date: 20151125
  Serious: Yes (Death)
  Sender: FDA-Public Use
  Company Number: US-ROCHE-1623772

PATIENT
  Sex: Male
  Weight: 76.27 kg

DRUGS (1)
  1. AVASTIN [Suspect]
     Active Substance: BEVACIZUMAB
     Indication: TRACHEAL CANCER
     Route: 042
     Dates: start: 20150612

REACTIONS (1)
  - Death [Fatal]
